FAERS Safety Report 13562120 (Version 1)
Quarter: 2017Q2

REPORT INFORMATION
  Report Type: Report from Study
  Country: CA (occurrence: CA)
  Receive Date: 20170519
  Receipt Date: 20170519
  Transmission Date: 20170830
  Serious: Yes (Other)
  Sender: FDA-Public Use
  Company Number: CA-HLSUS-2017-CA-000399

PATIENT
  Age: 33 Year
  Sex: Male
  Weight: 106 kg

DRUGS (2)
  1. CLOZARIL [Suspect]
     Active Substance: CLOZAPINE
     Indication: SCHIZOAFFECTIVE DISORDER
     Dosage: UP TO 550MG DAILY
     Route: 048
     Dates: start: 20160607, end: 20170310
  2. OLANZAPINE. [Concomitant]
     Active Substance: OLANZAPINE
     Dosage: 5-15MG
     Route: 048
     Dates: start: 2012

REACTIONS (4)
  - Urinary incontinence [Unknown]
  - Hyperhidrosis [Unknown]
  - Salivary hypersecretion [Unknown]
  - Neutropenia [Unknown]

NARRATIVE: CASE EVENT DATE: 201609
